FAERS Safety Report 24287223 (Version 2)
Quarter: 2024Q3

REPORT INFORMATION
  Report Type: Report from Study
  Country: EG (occurrence: EG)
  Receive Date: 20240905
  Receipt Date: 20240909
  Transmission Date: 20241016
  Serious: Yes (Disabling)
  Sender: NOVARTIS
  Company Number: EG-002147023-NVSC2024EG167173

PATIENT
  Age: 31 Year
  Sex: Female
  Weight: 85 kg

DRUGS (4)
  1. MAYZENT [Suspect]
     Active Substance: SIPONIMOD
     Indication: Multiple sclerosis
     Dosage: 4 DOSAGE FORM, QD
     Route: 048
     Dates: start: 202408
  2. GILENYA [Suspect]
     Active Substance: FINGOLIMOD HYDROCHLORIDE
     Indication: Multiple sclerosis
     Dosage: 0.5 MG, OTHER
     Route: 048
  3. OMEGA 3 [Suspect]
     Active Substance: CAPSAICIN
     Indication: Nervous system disorder
     Dosage: 1 DOSAGE FORM, QD (ONCE DAILY)
     Route: 048
     Dates: start: 2022
  4. HYDROXOCOBALAMIN [Suspect]
     Active Substance: HYDROXOCOBALAMIN
     Indication: Vitamin B12 abnormal
     Dosage: ONE INJECTION WEEKLY, QW
     Route: 030
     Dates: start: 2022

REACTIONS (3)
  - Gait inability [Not Recovered/Not Resolved]
  - Dizziness [Recovering/Resolving]
  - Drug ineffective [Not Recovered/Not Resolved]

NARRATIVE: CASE EVENT DATE: 20240801
